FAERS Safety Report 8332678-4 (Version None)
Quarter: 2012Q2

REPORT INFORMATION
  Report Type: 
  Country: None (occurrence: None)
  Receive Date: 20120503
  Receipt Date: 20120423
  Transmission Date: 20120825
  Serious: Yes (Hospitalization)
  Sender: FDA-Public Use
  Company Number: US-BAYER-2011-100193

PATIENT
  Age: 27 Year
  Sex: Female
  Weight: 136 kg

DRUGS (12)
  1. LIPITOR [Concomitant]
  2. TRAZODONE HCL [Concomitant]
  3. CIPROFLOXACIN HCL [Concomitant]
  4. COMBIVENT [Concomitant]
  5. LORCET-HD [Concomitant]
  6. LOPID [Concomitant]
  7. PROTONIX [Concomitant]
  8. CELEXA [Concomitant]
  9. VISTARIL [Concomitant]
  10. SINGULAIR [Concomitant]
  11. YAZ [Suspect]
     Indication: CONTRACEPTION
     Dosage: UNK
     Dates: start: 20050101, end: 20081001
  12. CLARITIN [Concomitant]

REACTIONS (3)
  - CHOLELITHIASIS [None]
  - CHOLECYSTITIS [None]
  - INJURY [None]
